FAERS Safety Report 10160955 (Version 2)
Quarter: 2014Q2

REPORT INFORMATION
  Report Type: Spontaneous
  Country: CH (occurrence: CH)
  Receive Date: 20140508
  Receipt Date: 20140508
  Transmission Date: 20141212
  Serious: Yes (Death, Other)
  Sender: FDA-Public Use
  Company Number: CH-BAXTER-2014BAX015936

PATIENT
  Age: 76 Year
  Sex: Male
  Weight: 98 kg

DRUGS (3)
  1. EXTRANEAL [Suspect]
     Indication: MYELOMA CAST NEPHROPATHY
     Dosage: 1 BAG
     Route: 033
     Dates: start: 2009, end: 2009
  2. PHYSIONEAL 40 1.36%W/V, DIALYSIS SOLUTION [Suspect]
     Indication: MYELOMA CAST NEPHROPATHY
     Dosage: 1 BAG
     Route: 033
     Dates: start: 2009, end: 2009
  3. PHYSIONEAL 40 CLEAR-FLEX 2.27% [Suspect]
     Indication: MYELOMA CAST NEPHROPATHY
     Dosage: 2 BAG
     Route: 033
     Dates: start: 2009, end: 2009

REACTIONS (8)
  - Pleural mesothelioma [Fatal]
  - Cardiac failure [Unknown]
  - Troponin increased [Unknown]
  - N-terminal prohormone brain natriuretic peptide increased [Unknown]
  - Pleural neoplasm [Unknown]
  - Lung infection [Unknown]
  - Pelvic venous thrombosis [Unknown]
  - Venous thrombosis limb [Unknown]
